FAERS Safety Report 15678755 (Version 1)
Quarter: 2018Q4

REPORT INFORMATION
  Report Type: Spontaneous
  Country: AF (occurrence: AF)
  Receive Date: 20181201
  Receipt Date: 20181201
  Transmission Date: 20190205
  Serious: Yes (Other)
  Sender: FDA-Public Use
  Company Number: None

PATIENT
  Age: 61 Year
  Sex: Female
  Weight: 65.25 kg

DRUGS (7)
  1. CLOBETASOL TOPICAL, [Concomitant]
  2. DEXILANT 60 MG., [Concomitant]
  3. SHAMPOO + CREAM 0.05% [Concomitant]
  4. LISINOPRIL 10 MG., [Concomitant]
  5. ENSTILAR [Suspect]
     Active Substance: BETAMETHASONE DIPROPIONATE\CALCIPOTRIENE HYDRATE
     Indication: PSORIASIS
     Dosage: ?          QUANTITY:1 APPLICATION;?
     Route: 061
  6. CRESTOR 20 MG, [Concomitant]
  7. CLOBETASOL TOPICAL, [Concomitant]

REACTIONS (2)
  - Ear congestion [None]
  - Ear pain [None]

NARRATIVE: CASE EVENT DATE: 20180825
